APPROVED DRUG PRODUCT: AMINOCAPROIC ACID
Active Ingredient: AMINOCAPROIC ACID
Strength: 0.25GM/ML
Dosage Form/Route: SOLUTION;ORAL
Application: A212494 | Product #001 | TE Code: AA
Applicant: TP ANDA HOLDINGS LLC
Approved: Aug 11, 2020 | RLD: No | RS: Yes | Type: RX